FAERS Safety Report 8406545 (Version 3)
Quarter: 2013Q4

REPORT INFORMATION
  Report Type: Spontaneous
  Country: US (occurrence: US)
  Receive Date: 20120215
  Receipt Date: 20131119
  Transmission Date: 20140711
  Serious: Yes (Hospitalization)
  Sender: FDA-Public Use
  Company Number: US-BAYER-2012-014740

PATIENT
  Age: 17 Year
  Sex: Female
  Weight: 63.49 kg

DRUGS (4)
  1. YAZ [Suspect]
     Indication: ACNE
     Dosage: UNK
     Dates: start: 200901, end: 201006
  2. PROTONIX [Concomitant]
     Dosage: 40 MG, DAILY
     Dates: start: 201006
  3. ZOFRAN [Concomitant]
     Dosage: 4 MG, PRN
     Dates: start: 201006
  4. SINGULAIR [Concomitant]
     Dosage: 10 MG
     Dates: start: 20100311

REACTIONS (6)
  - Gallbladder disorder [None]
  - Cholecystitis [None]
  - Nausea [None]
  - Abdominal pain [None]
  - Anxiety [None]
  - Anhedonia [None]
